FAERS Safety Report 12455311 (Version 1)
Quarter: 2016Q2

REPORT INFORMATION
  Report Type: Spontaneous
  Country: US (occurrence: None)
  Receive Date: 20160609
  Receipt Date: 20160609
  Transmission Date: 20160815
  Serious: Yes (Hospitalization)
  Sender: FDA-Public Use
  Company Number: None

PATIENT
  Age: 47 Year
  Sex: Male
  Weight: 112 kg

DRUGS (1)
  1. 5-FLUOROURACIL (5-FU) [Suspect]
     Active Substance: FLUOROURACIL
     Dates: end: 20160513

REACTIONS (4)
  - Jugular vein thrombosis [None]
  - Axillary vein thrombosis [None]
  - Subclavian vein thrombosis [None]
  - Device related thrombosis [None]

NARRATIVE: CASE EVENT DATE: 20160527
